FAERS Safety Report 13704428 (Version 2)
Quarter: 2017Q3

REPORT INFORMATION
  Report Type: Report from Study
  Country: US (occurrence: US)
  Receive Date: 20170630
  Receipt Date: 20170710
  Transmission Date: 20171127
  Serious: Yes (Death)
  Sender: FDA-Public Use
  Company Number: US-ACADIA PHARMACEUTICALS INC.-ACA-2017-003919

PATIENT
  Age: 81 Year
  Sex: Female
  Weight: 72.56 kg

DRUGS (2)
  1. NUPLAZID [Suspect]
     Active Substance: PIMAVANSERIN TARTRATE
     Indication: HALLUCINATION
     Dosage: 34 MG, QD
     Route: 048
     Dates: start: 20170207, end: 20170618
  2. EXELON [Concomitant]
     Active Substance: RIVASTIGMINE TARTRATE
     Indication: MEMORY IMPAIRMENT

REACTIONS (8)
  - Gastric disorder [Unknown]
  - Myocardial infarction [Fatal]
  - Balance disorder [Unknown]
  - Confusional state [Unknown]
  - Hallucination [Unknown]
  - Weight decreased [Unknown]
  - Malaise [Unknown]
  - Mobility decreased [Unknown]

NARRATIVE: CASE EVENT DATE: 20170618
